FAERS Safety Report 6057928-9 (Version None)
Quarter: 2009Q1

REPORT INFORMATION
  Report Type: 
  Country: None (occurrence: None)
  Receive Date: 20090129
  Receipt Date: 20090119
  Transmission Date: 20090719
  Serious: Yes (Other)
  Sender: FDA-Public Use
  Company Number: GB-MERCK-0901GBR00056

PATIENT

DRUGS (2)
  1. EMEND [Suspect]
     Indication: PROPHYLAXIS OF NAUSEA AND VOMITING
     Route: 048
     Dates: start: 20090101, end: 20090101
  2. CISPLATIN [Concomitant]
     Indication: HEAD AND NECK CANCER
     Route: 065

REACTIONS (1)
  - ANAPHYLACTIC SHOCK [None]
